FAERS Safety Report 4387735-4 (Version None)
Quarter: 2004Q2

REPORT INFORMATION
  Report Type: 
  Country: None (occurrence: None)
  Receive Date: 20040630
  Receipt Date: 20040621
  Transmission Date: 20050107
  Serious: Yes (Life-Threatening, Hospitalization, Other)
  Sender: FDA-Public Use
  Company Number: FR-BRISTOL-MYERS SQUIBB COMPANY-12625463

PATIENT
  Age: 51 Year
  Sex: Female

DRUGS (8)
  1. GLUCOPHAGE [Suspect]
     Indication: DIABETES MELLITUS NON-INSULIN-DEPENDENT
     Route: 048
     Dates: end: 20040504
  2. NOVOMIX [Concomitant]
     Dates: end: 20040504
  3. CAPTOPRIL [Concomitant]
     Dates: end: 20040504
  4. MOPRAL [Concomitant]
     Dates: end: 20040504
  5. DILTIAZEM HCL [Concomitant]
     Dates: end: 20040504
  6. SECTRAL [Concomitant]
     Dates: end: 20040504
  7. CAPTEA [Concomitant]
     Dates: end: 20040504
  8. NUCTALON [Concomitant]
     Dates: end: 20040504

REACTIONS (4)
  - DEHYDRATION [None]
  - GASTROENTERITIS [None]
  - LACTIC ACIDOSIS [None]
  - RENAL FAILURE ACUTE [None]
